FAERS Safety Report 8887865 (Version 2)
Quarter: 2012Q4

REPORT INFORMATION
  Report Type: 
  Country: JP (occurrence: JP)
  Receive Date: 20121106
  Receipt Date: 20121126
  Transmission Date: 20130627
  Serious: Yes (Life-Threatening, Hospitalization, Other)
  Sender: FDA-Public Use
  Company Number: JP-NOVOPROD-363039

PATIENT
  Age: 65 Year
  Sex: Male
  Weight: 53 kg

DRUGS (9)
  1. NOVOLIN R [Suspect]
     Indication: TYPE 1 DIABETES MELLITUS
     Dosage: 3 IU, tid
     Route: 058
     Dates: start: 201103
  2. NOVORAPID CHU FLEXPEN [Concomitant]
     Indication: TYPE 1 DIABETES MELLITUS
     Dosage: 3 IU, tid
     Route: 058
     Dates: start: 201103, end: 201103
  3. LANTUS [Suspect]
     Indication: TYPE 1 DIABETES MELLITUS
     Dosage: 4 IU, bid
     Route: 058
     Dates: start: 200802
  4. DIART [Concomitant]
     Indication: HYPERTENSION
     Route: 048
  5. NU-LOTAN [Concomitant]
     Indication: HYPERTENSION
     Route: 048
  6. THYRADIN [Concomitant]
     Indication: HYPOTHYROIDISM
     Route: 048
  7. LASIX                              /00032601/ [Concomitant]
     Indication: HYPERTENSION
     Route: 058
  8. GASMOTIN [Concomitant]
     Indication: AUTONOMIC NEUROPATHY
     Route: 048
  9. ROCALTROL [Concomitant]
     Indication: OSTEOPOROSIS
     Route: 048

REACTIONS (2)
  - Cardio-respiratory arrest [Unknown]
  - Hypoglycaemia [Unknown]
